FAERS Safety Report 6677542-1 (Version None)
Quarter: 2010Q2

REPORT INFORMATION
  Report Type: 
  Country: None (occurrence: None)
  Receive Date: 20100412
  Receipt Date: 20100209
  Transmission Date: 20101027
  Serious: No
  Sender: FDA-Public Use
  Company Number: US-ALEXION-A201000160

PATIENT
  Sex: Female

DRUGS (1)
  1. SOLIRIS [Suspect]
     Dosage: INDUCTION INFUSIONS
     Route: 042
     Dates: start: 20100201

REACTIONS (2)
  - INSOMNIA [None]
  - MIGRAINE [None]
